FAERS Safety Report 21885765 (Version 1)
Quarter: 2023Q1

REPORT INFORMATION
  Report Type: Spontaneous
  Country: US (occurrence: None)
  Receive Date: 20230118
  Receipt Date: 20230118
  Transmission Date: 20230418
  Serious: No
  Sender: FDA-Public Use
  Company Number: None

PATIENT
  Age: 41 Year
  Sex: Female
  Weight: 58.5 kg

DRUGS (1)
  1. VIBERZI [Suspect]
     Active Substance: ELUXADOLINE
     Indication: Gastric disorder
     Dates: start: 20230110, end: 20230111

REACTIONS (7)
  - Musculoskeletal disorder [None]
  - Diarrhoea [None]
  - Vomiting [None]
  - Paraesthesia [None]
  - Hyperhidrosis [None]
  - Heart rate increased [None]
  - Contraindicated product prescribed [None]

NARRATIVE: CASE EVENT DATE: 20230110
